FAERS Safety Report 15353409 (Version 1)
Quarter: 2018Q3

REPORT INFORMATION
  Report Type: Spontaneous
  Country: US (occurrence: US)
  Receive Date: 20180905
  Receipt Date: 20180905
  Transmission Date: 20181010
  Serious: Yes (Other)
  Sender: FDA-Public Use
  Company Number: US-TEVA-2018-US-949919

PATIENT
  Age: 56 Year
  Sex: Male
  Weight: 73.5 kg

DRUGS (15)
  1. DULOXETINE. [Suspect]
     Active Substance: DULOXETINE
     Dosage: 20 MILLIGRAM DAILY;
     Route: 048
     Dates: start: 20171024
  2. L?METHYL FOLATE (DIETARY SUPPLEMENT) [Concomitant]
     Route: 065
  3. FISH OIL (DIETARY SUPPLEMENT) [Concomitant]
     Route: 065
  4. TESTOSTERONE GEL [Suspect]
     Active Substance: TESTOSTERONE
     Route: 065
  5. TYLENOL [Concomitant]
     Active Substance: ACETAMINOPHEN
     Route: 065
  6. BUPROPION XL [Concomitant]
     Active Substance: BUPROPION
     Route: 065
  7. DULOXETINE. [Suspect]
     Active Substance: DULOXETINE
     Indication: MAJOR DEPRESSION
     Dosage: 60 MILLIGRAM DAILY;
     Route: 048
     Dates: start: 201804, end: 20180612
  8. VITAMIN D (DIETARY SUPPLEMENT) [Concomitant]
     Route: 065
  9. FLOMAX [Concomitant]
     Active Substance: TAMSULOSIN HYDROCHLORIDE
     Route: 065
  10. DULOXETINE. [Suspect]
     Active Substance: DULOXETINE
     Indication: MAJOR DEPRESSION
     Dosage: 60 MILLIGRAM DAILY;
     Route: 048
     Dates: start: 20180613
  11. BUPROPION XL [Concomitant]
     Active Substance: BUPROPION
     Route: 065
     Dates: start: 20171019, end: 20180611
  12. BUPROPION XL [Concomitant]
     Active Substance: BUPROPION
     Route: 065
  13. TESTOSTERONE IMPLANT PELLET [Concomitant]
     Dosage: IMPLANT PELLETS
     Dates: start: 20171001
  14. DULOXETINE. [Suspect]
     Active Substance: DULOXETINE
     Route: 048
  15. VITAMIN D (DIETARY SUPPLEMENT) [Concomitant]
     Route: 065

REACTIONS (16)
  - Transient ischaemic attack [Unknown]
  - Decreased appetite [Unknown]
  - Suicidal ideation [Unknown]
  - Product substitution issue [Unknown]
  - Ejaculation delayed [Recovered/Resolved]
  - Asthenia [Unknown]
  - Decreased interest [Unknown]
  - Disturbance in attention [Unknown]
  - Anxiety [Unknown]
  - Diarrhoea [Recovered/Resolved]
  - Depressed mood [Recovering/Resolving]
  - Major depression [Unknown]
  - Tension [Unknown]
  - Hypoaesthesia [Unknown]
  - Drug ineffective [Unknown]
  - Palpitations [Unknown]

NARRATIVE: CASE EVENT DATE: 201805
